FAERS Safety Report 5521246-5 (Version None)
Quarter: 2007Q4

REPORT INFORMATION
  Report Type: 
  Country: None (occurrence: None)
  Receive Date: 20071119
  Receipt Date: 20070727
  Transmission Date: 20080405
  Serious: Yes (Hospitalization, Other)
  Sender: FDA-Public Use
  Company Number: US-ASTRAZENECA-2007UW07408

PATIENT
  Age: 47 Year
  Sex: Male
  Weight: 100.9 kg

DRUGS (2)
  1. SEROQUEL [Suspect]
     Indication: SLEEP DISORDER
     Route: 048
     Dates: start: 20010101
  2. ZOLOFT [Concomitant]
     Dates: start: 20040101

REACTIONS (6)
  - CHEST PAIN [None]
  - DIABETES MELLITUS [None]
  - DYSPNOEA [None]
  - LOSS OF CONSCIOUSNESS [None]
  - PLATELET DISORDER [None]
  - STENT PLACEMENT [None]
